FAERS Safety Report 23396837 (Version 1)
Quarter: 2024Q1

REPORT INFORMATION
  Report Type: Spontaneous
  Country: FR (occurrence: FR)
  Receive Date: 20240112
  Receipt Date: 20240112
  Transmission Date: 20240410
  Serious: Yes (Hospitalization)
  Sender: FDA-Public Use
  Company Number: None

PATIENT
  Age: 63 Year
  Sex: Male

DRUGS (4)
  1. VALSARTAN [Suspect]
     Active Substance: VALSARTAN
     Indication: Hypertension
     Dosage: UNK
     Route: 048
  2. METFORMIN [Suspect]
     Active Substance: METFORMIN HYDROCHLORIDE
     Indication: Type 2 diabetes mellitus
     Dosage: 2 DOSAGE FORM, QD
     Route: 048
  3. YOHIMBINE HYDROCHLORIDE [Suspect]
     Active Substance: YOHIMBINE HYDROCHLORIDE
     Indication: Erectile dysfunction
     Dosage: 2 DOSAGE FORM, QD
     Route: 048
     Dates: end: 202311
  4. AMINO ACIDS\MINERALS\VITAMINS [Suspect]
     Active Substance: AMINO ACIDS\MINERALS\VITAMINS
     Indication: Hypertension
     Dosage: 2 DOSAGE FORM, QD
     Route: 048

REACTIONS (1)
  - Haemorrhagic stroke [Recovering/Resolving]

NARRATIVE: CASE EVENT DATE: 20231124
